FAERS Safety Report 21707511 (Version 2)
Quarter: 2023Q4

REPORT INFORMATION
  Report Type: Report from Study
  Country: US (occurrence: None)
  Receive Date: 20221209
  Receipt Date: 20231229
  Transmission Date: 20240110
  Serious: Yes (Disabling, Other)
  Sender: FDA-Public Use
  Company Number: 2022A393438

PATIENT
  Sex: Female
  Weight: 67.1 kg

DRUGS (1)
  1. TAGRISSO [Suspect]
     Active Substance: OSIMERTINIB
     Indication: Bronchial carcinoma
     Route: 048
     Dates: start: 20221013

REACTIONS (4)
  - Cellulitis [Recovering/Resolving]
  - Fracture [Recovering/Resolving]
  - Pain [Unknown]
  - Physiotherapy [Unknown]
